FAERS Safety Report 10033848 (Version 3)
Quarter: 2014Q1

REPORT INFORMATION
  Report Type: Spontaneous
  Country: CA (occurrence: CA)
  Receive Date: 20140325
  Receipt Date: 20140328
  Transmission Date: 20141002
  Serious: Yes (Hospitalization)
  Sender: FDA-Public Use
  Company Number: CA-BEH-2013037968

PATIENT
  Age: 53 Year
  Sex: Female
  Weight: 82 kg

DRUGS (5)
  1. PRIVIGEN [Suspect]
     Dosage: EXPIRY DATE: OCT 2015; 160 GM TOTAL OVER 2 DAYS AT MAX RATE OF 96 ML/MIN
     Route: 042
     Dates: start: 20130825, end: 20130826
  2. PRIVIGEN [Suspect]
     Dosage: EXPIRY DATE: OCT2015; 160 GM TOTAL OVER 2 DAYS AT MAX RATE OF 96 ML/MIN
     Route: 042
     Dates: start: 20130825, end: 20130826
  3. PRIVIGEN [Suspect]
     Indication: IMMUNE THROMBOCYTOPENIC PURPURA
     Dosage: EXPIRY DATE: JAN 2016; 160 GM TOTAL OVER 2 DAYS AT MAX RATE OF 96 ML/MIN
     Route: 042
     Dates: start: 20130825, end: 20130826
  4. METFORMIN [Concomitant]
     Indication: DIABETES MELLITUS
     Route: 048
  5. RAMIPRIL [Concomitant]
     Indication: HYPERTENSION
     Route: 048

REACTIONS (7)
  - Pulmonary embolism [Recovering/Resolving]
  - Autoimmune haemolytic anaemia [Not Recovered/Not Resolved]
  - Chest pain [Not Recovered/Not Resolved]
  - Dyspnoea [Not Recovered/Not Resolved]
  - Hyperhidrosis [Not Recovered/Not Resolved]
  - Anti-erythrocyte antibody [Not Recovered/Not Resolved]
  - Pallor [Not Recovered/Not Resolved]
